FAERS Safety Report 4359323-7 (Version None)
Quarter: 2004Q2

REPORT INFORMATION
  Report Type: 
  Country: None (occurrence: None)
  Receive Date: 20040512
  Receipt Date: 20040427
  Transmission Date: 20050107
  Serious: Yes (Hospitalization)
  Sender: FDA-Public Use
  Company Number: FR_040203580

PATIENT
  Age: 14 Year
  Sex: Male
  Weight: 31 kg

DRUGS (6)
  1. ZYPREXA [Suspect]
     Indication: AGITATION
     Dosage: 10 MG/DAY
     Route: 048
     Dates: start: 20040121
  2. ZYPREXA [Suspect]
     Indication: PSYCHOTIC DISORDER
     Dosage: 10 MG/DAY
     Route: 048
     Dates: start: 20040121
  3. DEPAKENE [Concomitant]
     Indication: EPILEPSY
  4. VALIUM [Concomitant]
  5. TETRAZEPAM [Concomitant]
  6. DUPHALAC [Concomitant]

REACTIONS (3)
  - FALL [None]
  - FEMUR FRACTURE [None]
  - PROTHROMBIN TIME PROLONGED [None]
